FAERS Safety Report 8083587-X (Version None)
Quarter: 2012Q1

REPORT INFORMATION
  Report Type: 
  Country: None (occurrence: None)
  Receive Date: 20120127
  Receipt Date: 20110126
  Transmission Date: 20120608
  Serious: No
  Sender: FDA-Public Use
  Company Number: US-ABBOTT-11P-163-0700985-00

PATIENT
  Age: 35 Year
  Sex: Female

DRUGS (2)
  1. ENDOCORT [Concomitant]
     Indication: PRODUCT USED FOR UNKNOWN INDICATION
  2. HUMIRA [Suspect]
     Indication: CROHN'S DISEASE
     Dates: start: 20101211

REACTIONS (6)
  - NAUSEA [None]
  - VOMITING [None]
  - DIARRHOEA [None]
  - DRUG INEFFECTIVE [None]
  - MYALGIA [None]
  - FATIGUE [None]
